FAERS Safety Report 5868358-4 (Version None)
Quarter: 2008Q3

REPORT INFORMATION
  Report Type: 
  Country: None (occurrence: None)
  Receive Date: 20080902
  Receipt Date: 20080902
  Transmission Date: 20090109
  Serious: Yes (Hospitalization)
  Sender: FDA-Public Use
  Company Number: None

PATIENT
  Age: 68 Year
  Sex: Female
  Weight: 33.2 kg

DRUGS (3)
  1. DOCETAXEL [Suspect]
  2. CISPLATIN [Suspect]
  3. FLUOROURACIL [Suspect]

REACTIONS (4)
  - CEREBROVASCULAR ACCIDENT [None]
  - HYPOTENSION [None]
  - MENTAL STATUS CHANGES [None]
  - UNRESPONSIVE TO STIMULI [None]
